FAERS Safety Report 8537560-5 (Version None)
Quarter: 2012Q3

REPORT INFORMATION
  Report Type: 
  Country: None (occurrence: None)
  Receive Date: 20120712
  Receipt Date: 20120710
  Transmission Date: 20120928
  Serious: Yes (Hospitalization, Other)
  Sender: FDA-Public Use
  Company Number: DAV-AE-ACY-12-02

PATIENT
  Age: 26 Year
  Sex: Female

DRUGS (4)
  1. DOXYCYCLINE HCL [Concomitant]
  2. CEFTRIAXONE [Concomitant]
  3. ACYCLOVIR [Suspect]
  4. AMPICILLIN [Suspect]

REACTIONS (7)
  - RELAPSING FEVER [None]
  - HYPOTENSION [None]
  - JARISCH-HERXHEIMER REACTION [None]
  - RASH [None]
  - DRUG HYPERSENSITIVITY [None]
  - ENCEPHALITIS [None]
  - AGITATION [None]
